FAERS Safety Report 16936556 (Version 1)
Quarter: 2019Q4

REPORT INFORMATION
  Report Type: Spontaneous
  Country: CN (occurrence: CN)
  Receive Date: 20191018
  Receipt Date: 20191018
  Transmission Date: 20200122
  Serious: Yes (Other)
  Sender: FDA-Public Use
  Company Number: CN-ELI_LILLY_AND_COMPANY-CN201910004549

PATIENT
  Sex: Male

DRUGS (2)
  1. HUMALOG MIX50/50 [Suspect]
     Active Substance: INSULIN LISPRO
     Dosage: 18 INTERNATIONAL UNIT, EACH EVENING
     Route: 058
     Dates: start: 2011
  2. HUMALOG MIX50/50 [Suspect]
     Active Substance: INSULIN LISPRO
     Indication: DIABETES MELLITUS
     Dosage: 20 INTERNATIONAL UNIT, EACH MORNING
     Route: 058
     Dates: start: 2011

REACTIONS (1)
  - Senile dementia [Unknown]

NARRATIVE: CASE EVENT DATE: 2018
